FAERS Safety Report 11273883 (Version 1)
Quarter: 2015Q3

REPORT INFORMATION
  Report Type: Report from Study
  Country: US (occurrence: US)
  Receive Date: 20150715
  Receipt Date: 20150715
  Transmission Date: 20151125
  Serious: Yes (Hospitalization, Other)
  Sender: FDA-Public Use
  Company Number: US-ABBVIE-15K-163-1422414-00

PATIENT
  Age: 71 Year
  Sex: Male
  Weight: 126.67 kg

DRUGS (10)
  1. COREG [Concomitant]
     Active Substance: CARVEDILOL
     Indication: PRODUCT USED FOR UNKNOWN INDICATION
  2. CASODEX [Concomitant]
     Active Substance: BICALUTAMIDE
     Indication: PROSTATIC DISORDER
  3. LASIX [Concomitant]
     Active Substance: FUROSEMIDE
     Indication: PRODUCT USED FOR UNKNOWN INDICATION
  4. LIPITOR [Concomitant]
     Active Substance: ATORVASTATIN CALCIUM
     Indication: PRODUCT USED FOR UNKNOWN INDICATION
  5. HUMIRA [Suspect]
     Active Substance: ADALIMUMAB
     Indication: CROHN^S DISEASE
     Route: 058
     Dates: start: 2015
  6. NEURONTIN [Concomitant]
     Active Substance: GABAPENTIN
     Indication: PRODUCT USED FOR UNKNOWN INDICATION
  7. PREDNISONE. [Concomitant]
     Active Substance: PREDNISONE
     Indication: PRODUCT USED FOR UNKNOWN INDICATION
  8. SYNTHROID [Concomitant]
     Active Substance: LEVOTHYROXINE SODIUM
     Indication: PRODUCT USED FOR UNKNOWN INDICATION
  9. TRAVATAN [Concomitant]
     Active Substance: TRAVOPROST
     Indication: PRODUCT USED FOR UNKNOWN INDICATION
  10. MAGNESIUM OXIDE. [Concomitant]
     Active Substance: MAGNESIUM OXIDE
     Indication: PRODUCT USED FOR UNKNOWN INDICATION

REACTIONS (21)
  - Perirectal abscess [Unknown]
  - Skin oedema [Unknown]
  - Gastrointestinal haemorrhage [Unknown]
  - Back pain [Unknown]
  - Radiation injury [Unknown]
  - Proctitis [Unknown]
  - Haemoglobin decreased [Unknown]
  - White blood cell count increased [Unknown]
  - Bladder hypertrophy [Unknown]
  - Hepatic steatosis [Unknown]
  - Renal cyst [Unknown]
  - Gastrointestinal ischaemia [Unknown]
  - Ileus [Unknown]
  - Pneumatosis intestinalis [Unknown]
  - Abdominal distension [Unknown]
  - Air embolism [Unknown]
  - Rectal ulcer [Unknown]
  - Rectal haemorrhage [Unknown]
  - Rectal perforation [Unknown]
  - Blood urea increased [Unknown]
  - Blood creatinine increased [Unknown]

NARRATIVE: CASE EVENT DATE: 201506
